FAERS Safety Report 16187618 (Version 1)
Quarter: 2019Q2

REPORT INFORMATION
  Report Type: Spontaneous
  Country: US (occurrence: US)
  Receive Date: 20190412
  Receipt Date: 20190412
  Transmission Date: 20190711
  Serious: No
  Sender: FDA-Public Use
  Company Number: US-JNJFOC-20190324602

PATIENT
  Age: 19 Year
  Sex: Female

DRUGS (4)
  1. TYLENOL EXTRA STRENGTH [Suspect]
     Active Substance: ACETAMINOPHEN
     Indication: MUSCLE SPASMS
     Dosage: 2 CAPLETS AT 4PM YESTERDAY, 2 MORE AT 11PM, 2 MORE AT 3AM, 2 MORE AT 8AM, 1 MORE CAPLET AT 12 NOON
     Route: 048
     Dates: start: 20190314
  2. TYLENOL EXTRA STRENGTH [Suspect]
     Active Substance: ACETAMINOPHEN
     Indication: INFLUENZA LIKE ILLNESS
     Dosage: 2 CAPLETS AT 4PM YESTERDAY, 2 MORE AT 11PM, 2 MORE AT 3AM, 2 MORE AT 8AM, 1 MORE CAPLET AT 12 NOON
     Route: 048
     Dates: start: 20190314
  3. TYLENOL EXTRA STRENGTH [Suspect]
     Active Substance: ACETAMINOPHEN
     Indication: DYSMENORRHOEA
     Dosage: 2 CAPLETS AT 4PM YESTERDAY, 2 MORE AT 11PM, 2 MORE AT 3AM, 2 MORE AT 8AM, 1 MORE CAPLET AT 12 NOON
     Route: 048
     Dates: start: 20190314
  4. IRON [Concomitant]
     Active Substance: IRON
     Indication: ANAEMIA
     Route: 065

REACTIONS (4)
  - Inappropriate schedule of product administration [Unknown]
  - Headache [Recovering/Resolving]
  - Overdose [Unknown]
  - Chills [Recovering/Resolving]

NARRATIVE: CASE EVENT DATE: 20190314
